FAERS Safety Report 17049286 (Version 1)
Quarter: 2019Q4

REPORT INFORMATION
  Report Type: Spontaneous
  Country: US (occurrence: US)
  Receive Date: 20191021
  Receipt Date: 20191021
  Transmission Date: 20200122
  Serious: Yes (Hospitalization, Other)
  Sender: FDA-Public Use
  Company Number: None

PATIENT
  Age: 57 Year
  Sex: Female
  Weight: 55.79 kg

DRUGS (1)
  1. HORIZANT [Suspect]
     Active Substance: GABAPENTIN ENACARBIL
     Indication: RESTLESS LEGS SYNDROME
     Route: 048
     Dates: start: 20190408, end: 20190826

REACTIONS (31)
  - Speech disorder [None]
  - Nightmare [None]
  - Confusional state [None]
  - Memory impairment [None]
  - Somnolence [None]
  - Nail discolouration [None]
  - Loss of personal independence in daily activities [None]
  - Night sweats [None]
  - Fatigue [None]
  - Urinary tract infection [None]
  - Temperature regulation disorder [None]
  - Poor venous access [None]
  - White blood cell count increased [None]
  - Enuresis [None]
  - Agitation [None]
  - Nausea [None]
  - Urine odour abnormal [None]
  - Vomiting [None]
  - Unresponsive to stimuli [None]
  - Restlessness [None]
  - Feeling cold [None]
  - Blood sodium decreased [None]
  - Ill-defined disorder [None]
  - Paraesthesia [None]
  - Headache [None]
  - Aphasia [None]
  - Pallor [None]
  - Dehydration [None]
  - Coma [None]
  - Sleep disorder [None]
  - Disturbance in attention [None]
